FAERS Safety Report 13702546 (Version 3)
Quarter: 2017Q3

REPORT INFORMATION
  Report Type: Report from Study
  Country: US (occurrence: US)
  Receive Date: 20170629
  Receipt Date: 20170824
  Transmission Date: 20171127
  Serious: Yes (Hospitalization)
  Sender: FDA-Public Use
  Company Number: US-ARIAD PHARMACEUTICALS, INC-2017US008453

PATIENT
  Sex: Female

DRUGS (3)
  1. ICLUSIG [Suspect]
     Active Substance: PONATINIB
     Indication: ACUTE LYMPHOCYTIC LEUKAEMIA
     Dosage: 45 MG, QD
     Route: 048
     Dates: start: 20170517
  2. ICLUSIG [Suspect]
     Active Substance: PONATINIB
     Dosage: 30 MG, QD
     Route: 048
  3. ICLUSIG [Suspect]
     Active Substance: PONATINIB
     Dosage: 30 MG, QD
     Route: 048

REACTIONS (8)
  - Cardiac murmur [Unknown]
  - Paraesthesia [Unknown]
  - Splenomegaly [Unknown]
  - Liver disorder [Unknown]
  - Acute kidney injury [Unknown]
  - Hyperglycaemia [Unknown]
  - Transaminases increased [Unknown]
  - Tachycardia [Recovered/Resolved]
